FAERS Safety Report 5315669-7 (Version None)
Quarter: 2007Q2

REPORT INFORMATION
  Report Type: 
  Country: None (occurrence: None)
  Receive Date: 20070503
  Receipt Date: 20070420
  Transmission Date: 20071010
  Serious: Yes (Other)
  Sender: FDA-Public Use
  Company Number: PE-GILEAD-2006-0010307

PATIENT
  Sex: Female

DRUGS (5)
  1. EMTRICITABINE/TENOFOVIR DISOPROXIL FUMARATE [Suspect]
     Indication: HIV INFECTION
     Route: 048
     Dates: start: 20060626, end: 20060920
  2. LOPINAVIR/RITONAVIR [Concomitant]
     Indication: HIV INFECTION
     Route: 048
     Dates: start: 20060626, end: 20060919
  3. RANITIDINE [Concomitant]
     Dates: start: 20060719, end: 20060921
  4. DIMENHYDRINATE [Concomitant]
     Dates: start: 20060719, end: 20060906
  5. MEDROXYPROGESTERONE [Concomitant]
     Indication: CONTRACEPTION
     Dates: start: 20060626, end: 20060920

REACTIONS (1)
  - ABORTION SPONTANEOUS [None]
